FAERS Safety Report 16864173 (Version 1)
Quarter: 2019Q3

REPORT INFORMATION
  Report Type: Report from Study
  Country: US (occurrence: US)
  Receive Date: 20190927
  Receipt Date: 20190927
  Transmission Date: 20191005
  Serious: Yes (Other)
  Sender: FDA-Public Use
  Company Number: US-GILEAD-2019-0430863

PATIENT
  Sex: Female

DRUGS (3)
  1. AZTREONAM LYSINE [Suspect]
     Active Substance: AZTREONAM LYSINE
     Indication: CYSTIC FIBROSIS
     Dosage: UNK
     Route: 065
  2. KALYDECO [Concomitant]
     Active Substance: IVACAFTOR
     Dosage: 150 MG PO BID
     Dates: start: 20190628
  3. PULMOZYME [Concomitant]
     Active Substance: DORNASE ALFA
     Dosage: INHALE 2.5 ML (2.5 MG) VIA NEBULIZER EVERY 12 HOURS
     Dates: start: 20190628

REACTIONS (1)
  - Cystic fibrosis [Not Recovered/Not Resolved]
